FAERS Safety Report 6072013-8 (Version None)
Quarter: 2009Q1

REPORT INFORMATION
  Report Type: 
  Country: None (occurrence: None)
  Receive Date: 20090205
  Receipt Date: 20090205
  Transmission Date: 20090719
  Serious: Yes (Disabling)
  Sender: FDA-Public Use
  Company Number: None

PATIENT
  Age: 44 Year
  Sex: Female
  Weight: 55.3388 kg

DRUGS (2)
  1. ZOLOFT [Suspect]
     Indication: DEPRESSION
     Dosage: ONE TIME DAY PO
     Route: 048
     Dates: start: 20020324, end: 20050105
  2. WELLBUTRIN [Suspect]
     Indication: DEPRESSION
     Dosage: ONE TIME DAY PO
     Route: 048
     Dates: start: 20020324, end: 20050105

REACTIONS (2)
  - INTENTIONAL SELF-INJURY [None]
  - OVERDOSE [None]
